FAERS Safety Report 15771042 (Version 8)
Quarter: 2021Q1

REPORT INFORMATION
  Report Type: Report from Study
  Country: FR (occurrence: FR)
  Receive Date: 20181228
  Receipt Date: 20210224
  Transmission Date: 20210419
  Serious: Yes (Hospitalization, Other)
  Sender: FDA-Public Use
  Company Number: FR-PFIZER INC-2016314948

PATIENT
  Age: 68 Year
  Sex: Male
  Weight: 86 kg

DRUGS (16)
  1. LOXEN /00639802/ [Concomitant]
     Active Substance: NICARDIPINE HYDROCHLORIDE
     Indication: HYPERTENSION
     Dosage: UNK
     Dates: start: 201512
  2. OFLOCET [OFLOXACIN] [Concomitant]
     Active Substance: OFLOXACIN
     Indication: URINARY TRACT INFECTION
     Dosage: UNK
     Dates: start: 201606, end: 201607
  3. PAZOPANIB [Concomitant]
     Active Substance: PAZOPANIB
     Indication: RENAL CELL CARCINOMA
     Dosage: UNK
     Dates: start: 201712, end: 201801
  4. ATENOLOL. [Concomitant]
     Active Substance: ATENOLOL
     Indication: HYPERTENSION
     Dosage: 50 (UNITS NOT PROVIDED)
     Dates: start: 201412, end: 201602
  5. TOPALGIC [Concomitant]
     Indication: SCIATICA
     Dosage: UNK
     Dates: start: 201607, end: 201608
  6. OMEPRAZOLE. [Concomitant]
     Active Substance: OMEPRAZOLE
     Indication: PROPHYLAXIS
     Dosage: UNK
     Dates: start: 201406, end: 201607
  7. FLUDROCORTISONE [Concomitant]
     Active Substance: FLUDROCORTISONE
     Indication: STEROID THERAPY
     Dosage: UNK
     Dates: start: 201507, end: 201702
  8. INEXIUM [ESOMEPRAZOLE MAGNESIUM] [Concomitant]
     Active Substance: ESOMEPRAZOLE MAGNESIUM
     Indication: DYSPEPSIA
     Dosage: UNK
     Dates: start: 201607
  9. ATENOLOL. [Concomitant]
     Active Substance: ATENOLOL
     Dosage: 100 (UNITS NOT PROVIDED)
     Dates: start: 201602
  10. APROVEL [Concomitant]
     Active Substance: IRBESARTAN
     Indication: HYPERTENSION
     Dosage: UNK
     Dates: start: 201511
  11. SUTENT [Suspect]
     Active Substance: SUNITINIB MALATE
     Dosage: 37.5 MG, CYCLIC, ONCE DAILY
     Dates: start: 201711, end: 201712
  12. PARACETAMOL [Concomitant]
     Active Substance: ACETAMINOPHEN
     Indication: PAIN
     Dosage: UNK
     Dates: start: 201607, end: 201608
  13. SUTENT [Suspect]
     Active Substance: SUNITINIB MALATE
     Indication: METASTATIC RENAL CELL CARCINOMA
     Dosage: 50 MG, CYCLIC (DAILY, 4 WEEKS ON/2 WEEKS OFF)
     Dates: start: 201512
  14. FUROSEMIDE. [Concomitant]
     Active Substance: FUROSEMIDE
     Indication: HYPERTENSION
     Dosage: UNK
     Dates: start: 201604, end: 201607
  15. HYDROCORTISONE. [Concomitant]
     Active Substance: HYDROCORTISONE
     Indication: ADRENAL INSUFFICIENCY
     Dosage: UNK
     Dates: start: 201507
  16. LYRICA [Concomitant]
     Active Substance: PREGABALIN
     Indication: SCIATICA
     Dosage: UNK
     Dates: start: 201606, end: 201607

REACTIONS (11)
  - Adrenal insufficiency [Recovering/Resolving]
  - Phlebitis [Recovering/Resolving]
  - Hypothyroidism [Not Recovered/Not Resolved]
  - Gastrointestinal fistula [Recovered/Resolved]
  - Colonic abscess [Not Recovered/Not Resolved]
  - Dysgeusia [Not Recovered/Not Resolved]
  - Gastrointestinal inflammation [Recovered/Resolved]
  - Decreased appetite [Recovered/Resolved]
  - Colitis [Not Recovered/Not Resolved]
  - Palmar-plantar erythrodysaesthesia syndrome [Recovered/Resolved]
  - Diverticulitis [Not Recovered/Not Resolved]

NARRATIVE: CASE EVENT DATE: 20151215
